FAERS Safety Report 6878313-3 (Version None)
Quarter: 2010Q3

REPORT INFORMATION
  Report Type: 
  Country: None (occurrence: None)
  Receive Date: 20100728
  Receipt Date: 20100716
  Transmission Date: 20110219
  Serious: Yes (Other)
  Sender: FDA-Public Use
  Company Number: GB-PFIZER INC-2010072134

PATIENT
  Age: 27 Year
  Sex: Male

DRUGS (3)
  1. CHAMPIX [Suspect]
     Indication: SMOKING CESSATION THERAPY
     Dosage: 500 UG, UNK
     Route: 048
     Dates: start: 20100501
  2. CHAMPIX [Suspect]
     Dosage: 500 UG, 2X/DAY
     Route: 048
  3. CHAMPIX [Suspect]
     Dosage: 1 MG, UNK
     Route: 048

REACTIONS (6)
  - CHEST DISCOMFORT [None]
  - DIZZINESS [None]
  - MUSCLE SPASMS [None]
  - NAUSEA [None]
  - SENSORY DISTURBANCE [None]
  - VOMITING [None]
